FAERS Safety Report 8484798-1 (Version None)
Quarter: 2012Q3

REPORT INFORMATION
  Report Type: 
  Country: None (occurrence: None)
  Receive Date: 20120703
  Receipt Date: 20120620
  Transmission Date: 20120928
  Serious: Yes (Hospitalization)
  Sender: FDA-Public Use
  Company Number: US-BAYER-2012-003335

PATIENT
  Age: 36 Year
  Sex: Female
  Weight: 104.31 kg

DRUGS (4)
  1. LEVOTHYROXINE SODIUM [Concomitant]
     Dosage: UNK
     Dates: start: 20100917, end: 20101110
  2. ADDERALL 5 [Concomitant]
  3. METFORMIN HCL [Concomitant]
     Dosage: UNK
     Dates: start: 20101021, end: 20101110
  4. YAZ [Suspect]
     Dosage: UNK
     Route: 048
     Dates: start: 20080501, end: 20101101

REACTIONS (4)
  - DEEP VEIN THROMBOSIS [None]
  - DYSPNOEA [None]
  - PULMONARY EMBOLISM [None]
  - PAIN IN EXTREMITY [None]
